FAERS Safety Report 23478193 (Version 1)
Quarter: 2024Q1

REPORT INFORMATION
  Report Type: Report from Study
  Country: US (occurrence: US)
  Receive Date: 20240204
  Receipt Date: 20240204
  Transmission Date: 20240410
  Serious: No
  Sender: FDA-Public Use
  Company Number: US-EXELIXIS-CABO-23070472

PATIENT
  Sex: Male

DRUGS (10)
  1. CABOMETYX [Suspect]
     Active Substance: CABOZANTINIB S-MALATE
     Indication: Gastrointestinal stromal tumour
     Dosage: 60 MG
     Dates: start: 20231024
  2. CABOMETYX [Suspect]
     Active Substance: CABOZANTINIB S-MALATE
     Dosage: 30 MG (STARTED TAKING ? TAB)
  3. PREDNISONE [Concomitant]
     Active Substance: PREDNISONE
  4. LIPITOR [Concomitant]
     Active Substance: ATORVASTATIN CALCIUM
  5. LISINOPRIL [Concomitant]
     Active Substance: LISINOPRIL
  6. NORVASC [Concomitant]
     Active Substance: AMLODIPINE BESYLATE
  7. VITAMIN C [Concomitant]
     Active Substance: ASCORBIC ACID
  8. VITAMIN D [Concomitant]
     Active Substance: VITAMIN D NOS
  9. ORENCIA [Concomitant]
     Active Substance: ABATACEPT
  10. MORPHINE [Concomitant]
     Active Substance: MORPHINE

REACTIONS (4)
  - Abdominal pain [Unknown]
  - Product prescribing issue [Unknown]
  - Wrong technique in product usage process [Unknown]
  - Off label use [Unknown]
